FAERS Safety Report 7501501-X (Version None)
Quarter: 2011Q2

REPORT INFORMATION
  Report Type: 
  Country: None (occurrence: None)
  Receive Date: 20110524
  Receipt Date: 20110512
  Transmission Date: 20111010
  Serious: Yes (Congenital Anomaly, Other)
  Sender: FDA-Public Use
  Company Number: US-WATSON-2011-05590

PATIENT
  Age: 28 Year
  Sex: Female

DRUGS (11)
  1. CYTARABINE [Suspect]
     Indication: BURKITT'S LYMPHOMA
  2. ANTIBACTERIALS FOR SYSTEMIC USE [Concomitant]
  3. PREDNISONE [Suspect]
     Indication: BURKITT'S LYMPHOMA
     Dosage: 100 MG, DAILY, DAYS 1-5
     Route: 048
  4. CYCLOPHOSPHAMIDE [Suspect]
     Indication: BURKITT'S LYMPHOMA
     Route: 017
  5. FILGRASTIM [Concomitant]
  6. DOXORUBICIN HCL [Suspect]
     Indication: BURKITT'S LYMPHOMA
  7. SOLUTIONS FOR PARENTERAL NUTRITION [Concomitant]
  8. BLOOD AND RELATED PRODUCTS [Concomitant]
  9. IFOSFAMIDE [Suspect]
     Indication: BURKITT'S LYMPHOMA
  10. VINCRISTINE [Suspect]
     Indication: BURKITT'S LYMPHOMA
  11. ETOPOSIDE [Suspect]
     Indication: BURKITT'S LYMPHOMA
     Dosage: 60 MG/M2, DAILY
     Route: 042

REACTIONS (5)
  - INTRA-UTERINE DEATH [None]
  - FEBRILE NEUTROPENIA [None]
  - EROSIVE OESOPHAGITIS [None]
  - VOMITING [None]
  - NAUSEA [None]
